FAERS Safety Report 5162235-2 (Version None)
Quarter: 2006Q4

REPORT INFORMATION
  Report Type: 
  Country: None (occurrence: None)
  Receive Date: 20061121
  Receipt Date: 20061110
  Transmission Date: 20070319
  Serious: Yes (Other)
  Sender: FDA-Public Use
  Company Number: 2006-295

PATIENT
  Age: 10 Year
  Sex: Male

DRUGS (9)
  1. CARBOPLATIN [Suspect]
     Indication: PRIMITIVE NEUROECTODERMAL TUMOUR
     Dosage: 500MG/M2
  2. ETOPOSIDE [Suspect]
     Indication: PRIMITIVE NEUROECTODERMAL TUMOUR
     Dosage: 250MG/M2
  3. PIPERACILLIN [Concomitant]
  4. VANCOMYCIN [Concomitant]
  5. BACTRIM [Concomitant]
  6. ACYCLOVIR [Concomitant]
  7. METRONIDAZOLE [Concomitant]
  8. FLUCONAZOLE [Concomitant]
  9. AMPHOTERICIN B [Concomitant]

REACTIONS (6)
  - ASPERGILLOSIS [None]
  - CONSTIPATION [None]
  - ENTEROCOLITIS [None]
  - GENERAL PHYSICAL HEALTH DETERIORATION [None]
  - HEPATIC ENZYME INCREASED [None]
  - PNEUMATOSIS INTESTINALIS [None]
